FAERS Safety Report 23729697 (Version 1)
Quarter: 2024Q2

REPORT INFORMATION
  Report Type: Report from Study
  Country: CA (occurrence: CA)
  Receive Date: 20240411
  Receipt Date: 20240411
  Transmission Date: 20240716
  Serious: Yes (Hospitalization, Other)
  Sender: FDA-Public Use
  Company Number: CA-ABBVIE-5664329

PATIENT
  Age: 75 Year
  Sex: Female

DRUGS (15)
  1. VENETOCLAX [Suspect]
     Active Substance: VENETOCLAX
     Indication: Acute myeloid leukaemia
     Route: 048
     Dates: start: 20231106, end: 20231106
  2. VENETOCLAX [Suspect]
     Active Substance: VENETOCLAX
     Indication: Acute myeloid leukaemia
     Route: 048
     Dates: start: 20231121, end: 20231121
  3. VENETOCLAX [Suspect]
     Active Substance: VENETOCLAX
     Indication: Acute myeloid leukaemia
     Route: 048
     Dates: start: 20240129, end: 20240211
  4. VENETOCLAX [Suspect]
     Active Substance: VENETOCLAX
     Indication: Acute myeloid leukaemia
     Route: 048
     Dates: start: 20231122, end: 20231217
  5. VENETOCLAX [Suspect]
     Active Substance: VENETOCLAX
     Indication: Acute myeloid leukaemia
     Route: 048
     Dates: start: 20240102, end: 20240115
  6. COVID-19 vaccine [Concomitant]
     Indication: COVID-19 prophylaxis
     Dosage: TIME INTERVAL: TOTAL: FIRST DOSE
     Route: 030
  7. COVID-19 vaccine [Concomitant]
     Indication: COVID-19 prophylaxis
     Dosage: TIME INTERVAL: TOTAL: SECOND DOSE
     Route: 030
  8. COVID-19 vaccine [Concomitant]
     Indication: COVID-19 prophylaxis
     Dosage: TIME INTERVAL: TOTAL: THIRD DOSE
     Route: 030
  9. COVID-19 vaccine [Concomitant]
     Indication: COVID-19 prophylaxis
     Dosage: TIME INTERVAL: TOTAL: FOURTH DOSE
     Route: 030
  10. COVID-19 vaccine [Concomitant]
     Indication: COVID-19 prophylaxis
     Dosage: TIME INTERVAL: TOTAL: FIFTH DOSE
     Route: 030
  11. COVID-19 vaccine [Concomitant]
     Indication: COVID-19 prophylaxis
     Dosage: TIME INTERVAL: TOTAL: SIXTH DOSE
     Route: 030
  12. AZACITIDINE [Suspect]
     Active Substance: AZACITIDINE
     Indication: Acute myeloid leukaemia
     Route: 065
     Dates: start: 20240102, end: 20240110
  13. AZACITIDINE [Suspect]
     Active Substance: AZACITIDINE
     Indication: Acute myeloid leukaemia
     Route: 065
     Dates: start: 20240129, end: 20240206
  14. AZACITIDINE [Suspect]
     Active Substance: AZACITIDINE
     Indication: Acute myeloid leukaemia
     Route: 065
     Dates: start: 20231106, end: 20231106
  15. AZACITIDINE [Suspect]
     Active Substance: AZACITIDINE
     Indication: Acute myeloid leukaemia
     Route: 065
     Dates: start: 20231121, end: 20231128

REACTIONS (4)
  - Septic shock [Recovered/Resolved]
  - Cough [Unknown]
  - Circulatory collapse [Unknown]
  - Hypotension [Unknown]

NARRATIVE: CASE EVENT DATE: 20240101
